FAERS Safety Report 10026925 (Version 2)
Quarter: 2014Q1

REPORT INFORMATION
  Report Type: Report from Study
  Country: US (occurrence: US)
  Receive Date: 20140321
  Receipt Date: 20140321
  Transmission Date: 20141002
  Serious: Yes (Hospitalization, Other)
  Sender: FDA-Public Use
  Company Number: US-ROCHE-1365219

PATIENT
  Age: 45 Year
  Sex: Female
  Weight: 74.91 kg

DRUGS (5)
  1. ACTEMRA [Suspect]
     Indication: RHEUMATOID ARTHRITIS
     Route: 042
     Dates: start: 20130819
  2. ACTEMRA [Suspect]
     Route: 042
     Dates: start: 20140311
  3. ALEVE [Concomitant]
  4. ALLEGRA [Concomitant]
  5. VITAMIN D3 [Concomitant]

REACTIONS (2)
  - Chest pain [Recovered/Resolved]
  - Dyspnoea [Recovered/Resolved]
